FAERS Safety Report 10427311 (Version 1)
Quarter: 2014Q3

REPORT INFORMATION
  Report Type: Spontaneous
  Country: NO (occurrence: NO)
  Receive Date: 20140903
  Receipt Date: 20140903
  Transmission Date: 20150326
  Serious: Yes (Other)
  Sender: FDA-Public Use
  Company Number: NO-ASTRAZENECA-2014SE63389

PATIENT
  Age: 56 Year
  Sex: Male

DRUGS (7)
  1. IBUX [Suspect]
     Active Substance: IBUPROFEN
     Route: 065
  2. PARACET [Suspect]
     Active Substance: ACETAMINOPHEN
     Route: 065
  3. FORTECORTIN [Suspect]
     Active Substance: DEXAMETHASONE
     Route: 065
  4. ULTIVA [Suspect]
     Active Substance: REMIFENTANIL HYDROCHLORIDE
     Route: 065
  5. CODAXOL [Suspect]
     Active Substance: ACETAMINOPHEN\CODEINE PHOSPHATE
     Route: 065
  6. PROPOFOL. [Suspect]
     Active Substance: PROPOFOL
     Route: 042
  7. FENTANYL. [Suspect]
     Active Substance: FENTANYL
     Route: 065

REACTIONS (1)
  - Hepatotoxicity [Recovered/Resolved]
